FAERS Safety Report 7377666-X (Version None)
Quarter: 2011Q1

REPORT INFORMATION
  Report Type: 
  Country: None (occurrence: None)
  Receive Date: 20110328
  Receipt Date: 20110321
  Transmission Date: 20110831
  Serious: Yes (Death, Hospitalization, Other)
  Sender: FDA-Public Use
  Company Number: PHHO2011FR04210

PATIENT
  Sex: Male

DRUGS (2)
  1. STI571/CGP57148B [Suspect]
     Indication: ACUTE LYMPHOCYTIC LEUKAEMIA
     Dosage: UNK
     Dates: start: 20090705
  2. CORTANCYL [Concomitant]

REACTIONS (11)
  - NECROSIS [None]
  - GENERAL PHYSICAL HEALTH DETERIORATION [None]
  - EYELID PTOSIS [None]
  - ESCHERICHIA BACTERAEMIA [None]
  - CELLULITIS [None]
  - PYREXIA [None]
  - ZYGOMYCOSIS [None]
  - SWELLING FACE [None]
  - PANCYTOPENIA [None]
  - NEOPLASM MALIGNANT [None]
  - APLASIA [None]
